FAERS Safety Report 25468057 (Version 3)
Quarter: 2025Q2

REPORT INFORMATION
  Report Type: Report from Study
  Country: JP (occurrence: JP)
  Receive Date: 20250623
  Receipt Date: 20250626
  Transmission Date: 20250716
  Serious: Yes (Death, Hospitalization)
  Sender: ROCHE
  Company Number: JP-CHUGAI-2024017950AA

PATIENT
  Age: 65 Year
  Sex: Male
  Weight: 86 kg

DRUGS (2)
  1. TECENTRIQ [Suspect]
     Active Substance: ATEZOLIZUMAB
     Indication: Non-small cell lung cancer
     Route: 042
     Dates: start: 20240523, end: 20240523
  2. TECENTRIQ [Suspect]
     Active Substance: ATEZOLIZUMAB
     Route: 042
     Dates: start: 20240625, end: 20241029

REACTIONS (6)
  - Hyperthyroidism [Recovering/Resolving]
  - Immune-mediated thyroiditis [Recovering/Resolving]
  - Decreased appetite [Recovered/Resolved]
  - Malaise [Recovered/Resolved]
  - Non-small cell lung cancer [Fatal]
  - Hypoxia [Recovered/Resolved]

NARRATIVE: CASE EVENT DATE: 20240605
